FAERS Safety Report 24832095 (Version 1)
Quarter: 2025Q1

REPORT INFORMATION
  Report Type: Report from Study
  Country: CN (occurrence: CN)
  Receive Date: 20250110
  Receipt Date: 20250110
  Transmission Date: 20250408
  Serious: Yes (Other)
  Sender: PFIZER
  Company Number: CN-TAKEDA-2023TUS011986

PATIENT
  Age: 18 Year
  Sex: Female
  Weight: 49 kg

DRUGS (20)
  1. BRENTUXIMAB VEDOTIN [Suspect]
     Active Substance: BRENTUXIMAB VEDOTIN
     Indication: Anaplastic large cell lymphoma T- and null-cell types
     Route: 042
     Dates: start: 20220923
  2. BRENTUXIMAB VEDOTIN [Suspect]
     Active Substance: BRENTUXIMAB VEDOTIN
     Indication: Hodgkin^s disease
  3. VINCRISTINE SULFATE [Suspect]
     Active Substance: VINCRISTINE SULFATE
     Indication: Lymphoma
     Route: 042
     Dates: start: 20220923, end: 20221107
  4. VINCRISTINE SULFATE [Suspect]
     Active Substance: VINCRISTINE SULFATE
     Dosage: 2 MILLIGRAM, QD
     Route: 042
     Dates: start: 20230123, end: 20230123
  5. DOXORUBICIN HYDROCHLORIDE [Suspect]
     Active Substance: DOXORUBICIN HYDROCHLORIDE
     Indication: Lymphoma
     Route: 042
     Dates: start: 20220923, end: 20221009
  6. DOXORUBICIN HYDROCHLORIDE [Suspect]
     Active Substance: DOXORUBICIN HYDROCHLORIDE
     Route: 042
     Dates: start: 20221024, end: 20221107
  7. DOXORUBICIN HYDROCHLORIDE [Suspect]
     Active Substance: DOXORUBICIN HYDROCHLORIDE
     Dosage: 20 MILLIGRAM, QD
     Route: 042
     Dates: start: 20230123, end: 20230221
  8. CYCLOPHOSPHAMIDE [Suspect]
     Active Substance: CYCLOPHOSPHAMIDE
     Route: 065
  9. DACARBAZINE [Suspect]
     Active Substance: DACARBAZINE
     Indication: Lymphoma
     Route: 042
     Dates: start: 20220923, end: 20221024
  10. DACARBAZINE [Suspect]
     Active Substance: DACARBAZINE
     Route: 042
     Dates: start: 20221107, end: 20221107
  11. DACARBAZINE [Suspect]
     Active Substance: DACARBAZINE
     Dosage: 580 MILLIGRAM, QD
     Route: 042
     Dates: start: 20230123, end: 20230221
  12. SERTRALINE HYDROCHLORIDE [Concomitant]
     Active Substance: SERTRALINE HYDROCHLORIDE
     Indication: Depression
     Route: 048
     Dates: start: 202209
  13. SERTRALINE HYDROCHLORIDE [Concomitant]
     Active Substance: SERTRALINE HYDROCHLORIDE
     Route: 048
     Dates: start: 202209
  14. GRANULOCYTE COLONY-STIMULATING FACTOR NOS [Concomitant]
     Active Substance: GRANULOCYTE COLONY-STIMULATING FACTOR NOS
     Indication: White blood cell count decreased
     Dosage: 200 MICROGRAM, QD
     Route: 058
     Dates: start: 20230207, end: 20230207
  15. DIISOPROPYLAMINE DICHLORACETATE [Concomitant]
     Indication: Prophylaxis
     Dosage: 40 MILLIGRAM, QD
     Route: 042
     Dates: start: 20230208, end: 20230208
  16. INSULIN NOS [Concomitant]
     Active Substance: INSULIN NOS
     Indication: Prophylaxis
     Dosage: 4 INTERNATIONAL UNIT, QD
     Route: 042
     Dates: start: 20230208, end: 20230208
  17. SODIUM BICARBONATE [Concomitant]
     Active Substance: SODIUM BICARBONATE
     Indication: Urine alkalinisation therapy
     Dosage: 2 GRAM, QD
     Route: 042
     Dates: start: 20230208, end: 20230208
  18. DEXAMETHASONE SODIUM PHOSPHATE [Concomitant]
     Active Substance: DEXAMETHASONE SODIUM PHOSPHATE
     Indication: Antiinflammatory therapy
     Dosage: 20 MILLIGRAM, QD
     Route: 042
     Dates: start: 20230208, end: 20230208
  19. DIPHENHYDRAMINE [Concomitant]
     Active Substance: DIPHENHYDRAMINE
     Indication: Hypersensitivity
     Dosage: 50 MILLIGRAM, QD
     Route: 048
     Dates: start: 20230208, end: 20230208
  20. DIPHENHYDRAMINE [Concomitant]
     Active Substance: DIPHENHYDRAMINE
     Indication: Vertigo

REACTIONS (5)
  - Myelosuppression [Recovered/Resolved]
  - Hypoproteinaemia [Recovered/Resolved]
  - Hyperuricaemia [Recovered/Resolved]
  - Gamma-glutamyltransferase increased [Recovered/Resolved]
  - Off label use [Recovered/Resolved]

NARRATIVE: CASE EVENT DATE: 20220923
